FAERS Safety Report 6805716-5 (Version None)
Quarter: 2010Q2

REPORT INFORMATION
  Report Type: 
  Country: None (occurrence: None)
  Receive Date: 20100628
  Receipt Date: 20100104
  Transmission Date: 20101027
  Serious: No
  Sender: FDA-Public Use
  Company Number: US-PFIZER INC-2007088557

PATIENT
  Sex: Female

DRUGS (3)
  1. XALATAN [Suspect]
     Indication: VISUAL IMPAIRMENT
     Dosage: UNK
     Route: 061
     Dates: start: 20070923
  2. XALATAN [Suspect]
     Indication: GLAUCOMA
  3. FOSAMAX [Concomitant]
     Dosage: UNK
     Route: 048

REACTIONS (7)
  - ERYTHEMA [None]
  - EYELIDS PRURITUS [None]
  - HYPERSENSITIVITY [None]
  - NERVOUSNESS [None]
  - PHOTOPHOBIA [None]
  - RASH [None]
  - SCRATCH [None]
